FAERS Safety Report 6115204-X (Version None)
Quarter: 2009Q1

REPORT INFORMATION
  Report Type: 
  Country: None (occurrence: None)
  Receive Date: 20090311
  Receipt Date: 20080923
  Transmission Date: 20090719
  Serious: Yes (Other)
  Sender: FDA-Public Use
  Company Number: US200809005131

PATIENT
  Age: 57 Year
  Sex: Male

DRUGS (3)
  1. GEMZAR [Suspect]
     Indication: BLADDER CANCER
     Dates: start: 20080101, end: 20080101
  2. GEMZAR [Suspect]
     Indication: BLADDER CANCER
     Dates: start: 20080101
  3. CISPLATIN (CISPLATIN UNKNOWN FORMULATION) [Concomitant]

REACTIONS (1)
  - MYOCARDIAL INFARCTION [None]
